FAERS Safety Report 6084840-1 (Version None)
Quarter: 2009Q1

REPORT INFORMATION
  Report Type: 
  Country: None (occurrence: None)
  Receive Date: 20090218
  Receipt Date: 20080402
  Transmission Date: 20090719
  Serious: Yes (Hospitalization, Other)
  Sender: FDA-Public Use
  Company Number: DSA_31708_2008

PATIENT
  Age: 87 Year
  Sex: Female

DRUGS (3)
  1. ENALAPRIL MALEATE [Suspect]
     Indication: DRUG USE FOR UNKNOWN INDICATION
     Dosage: (DF)
     Dates: end: 20021007
  2. MINOXIDIL [Suspect]
     Indication: DRUG USE FOR UNKNOWN INDICATION
     Dosage: (DF)
     Dates: end: 20021007
  3. FUROSEMIDE [Suspect]
     Indication: DRUG USE FOR UNKNOWN INDICATION
     Dosage: (DF)
     Dates: end: 20021007

REACTIONS (5)
  - ASTHENIA [None]
  - CARDIAC FAILURE CONGESTIVE [None]
  - HYPERTENSION [None]
  - PNEUMONIA [None]
  - VENTRICULAR TACHYCARDIA [None]
